FAERS Safety Report 24080723 (Version 2)
Quarter: 2024Q3

REPORT INFORMATION
  Report Type: Spontaneous
  Country: US (occurrence: None)
  Receive Date: 20240711
  Receipt Date: 20240809
  Transmission Date: 20241017
  Serious: Yes (Other)
  Sender: ASTRAZENECA
  Company Number: 2024A153528

PATIENT
  Sex: Male

DRUGS (1)
  1. BREZTRI [Suspect]
     Active Substance: BUDESONIDE\FORMOTEROL\GLYCOPYRROLATE
     Dosage: UNKNOWN
     Route: 055
     Dates: start: 20240212, end: 20240626

REACTIONS (13)
  - Atrioventricular block [Unknown]
  - Throat tightness [Unknown]
  - Muscle spasms [Unknown]
  - Abdominal pain upper [Unknown]
  - Flatulence [Unknown]
  - Drug effect less than expected [Unknown]
  - Chest discomfort [Unknown]
  - Fatigue [Unknown]
  - Foreign body in throat [Unknown]
  - Adrenal disorder [Unknown]
  - Electrocardiogram abnormal [Unknown]
  - Arthralgia [Unknown]
  - Sleep apnoea syndrome [Unknown]
